FAERS Safety Report 7777066-4 (Version None)
Quarter: 2011Q3

REPORT INFORMATION
  Report Type: 
  Country: None (occurrence: None)
  Receive Date: 20110926
  Receipt Date: 20110926
  Transmission Date: 20111222
  Serious: No
  Sender: FDA-Public Use
  Company Number: None

PATIENT
  Age: 30 Year
  Sex: Female
  Weight: 79.832 kg

DRUGS (2)
  1. SULFACETAMIDE SODIUM [Suspect]
     Indication: CONJUNCTIVITIS
     Dates: start: 20110923, end: 20110924
  2. CLEAR EYES COOLING [Concomitant]

REACTIONS (5)
  - EYE DISCHARGE [None]
  - OCULAR HYPERAEMIA [None]
  - EYE SWELLING [None]
  - DRUG HYPERSENSITIVITY [None]
  - PRODUCT LABEL ISSUE [None]
